FAERS Safety Report 26155768 (Version 1)
Quarter: 2025Q4

REPORT INFORMATION
  Report Type: Report from Study
  Country: CA (occurrence: CA)
  Receive Date: 20251215
  Receipt Date: 20251215
  Transmission Date: 20260117
  Serious: Yes (Other)
  Sender: BIOCON
  Company Number: CA-MIMS-BCONMC-15735

PATIENT

DRUGS (3)
  1. HULIO [Suspect]
     Active Substance: ADALIMUMAB-FKJP
     Indication: Rheumatoid arthritis
     Dosage: 40 MG, Q2W (EVERY 2 WEEKS)
     Route: 058
  2. HULIO [Suspect]
     Active Substance: ADALIMUMAB-FKJP
     Dosage: 40 MG, BIWEEKLY
     Route: 058
     Dates: start: 20250308
  3. LEFLUNOMIDE [Suspect]
     Active Substance: LEFLUNOMIDE
     Indication: Product used for unknown indication
     Dosage: UNK
     Route: 065

REACTIONS (9)
  - Pulmonary congestion [Not Recovered/Not Resolved]
  - Neuropathy peripheral [Unknown]
  - Pulmonary mass [Unknown]
  - Hernia [Unknown]
  - Blood glucose decreased [Unknown]
  - Asthma [Unknown]
  - Productive cough [Unknown]
  - Dyspnoea [Unknown]
  - Pleural effusion [Unknown]
